FAERS Safety Report 4935852-X (Version None)
Quarter: 2006Q1

REPORT INFORMATION
  Report Type: 
  Country: None (occurrence: None)
  Receive Date: 20060307
  Receipt Date: 20060303
  Transmission Date: 20060701
  Serious: Yes (Other)
  Sender: FDA-Public Use
  Company Number: GB-AVENTIS-200612075GDDC

PATIENT
  Age: 54 Year
  Sex: Male
  Weight: 80 kg

DRUGS (1)
  1. LANTUS [Suspect]
     Indication: BLOOD GLUCOSE ABNORMAL
     Dosage: DOSE UNIT: UNITS
     Route: 058
     Dates: end: 20060221

REACTIONS (2)
  - JAUNDICE [None]
  - VOMITING [None]
